FAERS Safety Report 17454129 (Version 1)
Quarter: 2020Q1

REPORT INFORMATION
  Report Type: Spontaneous
  Country: US (occurrence: US)
  Receive Date: 20200211
  Receipt Date: 20200211
  Transmission Date: 20200409
  Serious: Yes (Hospitalization)
  Sender: FDA-Public Use
  Company Number: None

PATIENT
  Age: 73 Year
  Sex: Male

DRUGS (15)
  1. FAMCOLOVR [Concomitant]
  2. VITAMIN D [Concomitant]
     Active Substance: VITAMIN D NOS
  3. CEFUROXIME. [Concomitant]
     Active Substance: CEFUROXIME
  4. COMBIVENT [Concomitant]
     Active Substance: ALBUTEROL SULFATE\IPRATROPIUM BROMIDE
  5. FENOFIBRATE. [Concomitant]
     Active Substance: FENOFIBRATE
  6. METOLAZONE. [Concomitant]
     Active Substance: METOLAZONE
  7. PRIMDONE [Concomitant]
  8. SILDENAFIL. [Concomitant]
     Active Substance: SILDENAFIL
  9. BD PEN NEEDL [Concomitant]
  10. ALPRAZOLAM. [Concomitant]
     Active Substance: ALPRAZOLAM
  11. BUMETANIDE. [Concomitant]
     Active Substance: BUMETANIDE
  12. CYANOCOBALAM [Concomitant]
     Active Substance: CYANOCOBALAMIN
  13. HYDRALAZINE [Concomitant]
     Active Substance: HYDRALAZINE HYDROCHLORIDE
  14. AMBRISENTAN 5MG [Suspect]
     Active Substance: AMBRISENTAN
     Indication: PULMONARY ARTERIAL HYPERTENSION
     Route: 048
     Dates: start: 20190818
  15. ESCITALOPRAM [Concomitant]
     Active Substance: ESCITALOPRAM OXALATE

REACTIONS (1)
  - Pneumonia [None]

NARRATIVE: CASE EVENT DATE: 20200203
